FAERS Safety Report 24314471 (Version 1)
Quarter: 2024Q3

REPORT INFORMATION
  Report Type: Spontaneous
  Country: CN (occurrence: CN)
  Receive Date: 20240913
  Receipt Date: 20240913
  Transmission Date: 20241017
  Serious: Yes (Death, Other)
  Sender: STRIDES
  Company Number: CN-STRIDES ARCOLAB LIMITED-2024SP011613

PATIENT
  Age: 62 Year
  Sex: Female

DRUGS (9)
  1. PREDNISOLONE [Suspect]
     Active Substance: PREDNISOLONE
     Indication: Myeloproliferative neoplasm
     Dosage: 1 MILLIGRAM/KILOGRAM;TABLET ON DAYS 1-5
     Route: 065
  2. ETOPOSIDE [Suspect]
     Active Substance: ETOPOSIDE
     Indication: Myeloproliferative neoplasm
     Dosage: 60 MILLIGRAM/SQ. METER;ON DAYS 1-3
     Route: 065
  3. CYCLOPHOSPHAMIDE [Suspect]
     Active Substance: CYCLOPHOSPHAMIDE
     Indication: Myeloproliferative neoplasm
     Dosage: 750 MILLIGRAM/SQ. METER;ON DAY 1
     Route: 065
  4. DOXORUBICIN HYDROCHLORIDE [Suspect]
     Active Substance: DOXORUBICIN HYDROCHLORIDE
     Indication: Myeloproliferative neoplasm
     Dosage: 20 MILLIGRAM/SQ. METER;ON DAY 1
     Route: 065
  5. VINDESINE [Suspect]
     Active Substance: VINDESINE
     Indication: Myeloproliferative neoplasm
     Dosage: 2 MILLIGRAM/SQ. METER;ON DAY 1
     Route: 065
  6. DASATINIB [Suspect]
     Active Substance: DASATINIB
     Indication: Myeloproliferative neoplasm
     Dosage: UNK
     Route: 065
  7. VENETOCLAX [Suspect]
     Active Substance: VENETOCLAX
     Indication: Myeloproliferative neoplasm
     Dosage: 400 MILLIGRAM, QD
     Route: 065
  8. AZACITIDINE [Suspect]
     Active Substance: AZACITIDINE
     Indication: Myeloproliferative neoplasm
     Dosage: 75 MILLIGRAM/SQ. METER
     Route: 065
  9. TUCIDINOSTAT [Suspect]
     Active Substance: TUCIDINOSTAT
     Indication: Myeloproliferative neoplasm
     Dosage: 20 MILLIGRAM
     Route: 065

REACTIONS (4)
  - Pneumonia [Fatal]
  - Malignant neoplasm progression [Unknown]
  - Drug ineffective [Unknown]
  - Off label use [Unknown]
